FAERS Safety Report 12310941 (Version 2)
Quarter: 2016Q2

REPORT INFORMATION
  Report Type: Spontaneous
  Country: US (occurrence: US)
  Receive Date: 20160427
  Receipt Date: 20160601
  Transmission Date: 20160815
  Serious: Yes (Other)
  Sender: FDA-Public Use
  Company Number: US-BAYER-2016-074904

PATIENT
  Age: 61 Year
  Sex: Female

DRUGS (11)
  1. CRANBERRY. [Concomitant]
     Active Substance: CRANBERRY
  2. CARBAMAZEPINE. [Concomitant]
     Active Substance: CARBAMAZEPINE
     Dosage: UNK
  3. TOPAMAX [Concomitant]
     Active Substance: TOPIRAMATE
     Dosage: 25 MG, UNK
  4. AMPYRA [Suspect]
     Active Substance: DALFAMPRIDINE
     Indication: MULTIPLE SCLEROSIS
     Dosage: 10 MG, BID
     Route: 048
     Dates: start: 2010
  5. PAXIL [Concomitant]
     Active Substance: PAROXETINE HYDROCHLORIDE
     Dosage: 10 MG, UNK
  6. AMPYRA [Suspect]
     Active Substance: DALFAMPRIDINE
     Indication: GAIT DISTURBANCE
  7. LEVOTHYROXINE. [Concomitant]
     Active Substance: LEVOTHYROXINE
     Dosage: 25 MG, UNK
  8. MODAFINIL. [Concomitant]
     Active Substance: MODAFINIL
     Dosage: 200 MG, UNK
  9. BETASERON [Suspect]
     Active Substance: INTERFERON BETA-1B
     Indication: MULTIPLE SCLEROSIS
     Dosage: 0.25 MG, QOD
     Dates: start: 1994
  10. GABAPENTIN. [Concomitant]
     Active Substance: GABAPENTIN
     Dosage: 600 MG, UNK
  11. MECLIZINE [Concomitant]
     Active Substance: MECLIZINE HYDROCHLORIDE
     Dosage: 25 MG, UNK

REACTIONS (11)
  - Multiple sclerosis [Unknown]
  - Influenza like illness [Recovered/Resolved]
  - Cystitis [Recovered/Resolved]
  - Gastroenteritis viral [Recovered/Resolved]
  - Diarrhoea [Recovered/Resolved]
  - Gait disturbance [Unknown]
  - Depressed mood [Recovered/Resolved]
  - Injection site pain [Not Recovered/Not Resolved]
  - Injection site erythema [Not Recovered/Not Resolved]
  - Balance disorder [Unknown]
  - Injection site scar [Not Recovered/Not Resolved]

NARRATIVE: CASE EVENT DATE: 1994
